FAERS Safety Report 4762703-9 (Version None)
Quarter: 2005Q3

REPORT INFORMATION
  Report Type: 
  Country: None (occurrence: None)
  Receive Date: 20050907
  Receipt Date: 20050823
  Transmission Date: 20060218
  Serious: No
  Sender: FDA-Public Use
  Company Number: US-MERCK-0508USA03790M

PATIENT
  Age: 39 Year
  Sex: Female

DRUGS (4)
  1. SINGULAIR [Suspect]
     Indication: ASTHMA
     Route: 048
     Dates: start: 19990101
  2. YASMIN [Concomitant]
     Route: 065
  3. ZYRTEC [Concomitant]
     Route: 048
  4. ALBUTEROL [Concomitant]
     Route: 065

REACTIONS (2)
  - DRUG EXPOSURE DURING PREGNANCY [None]
  - MYALGIA [None]
